FAERS Safety Report 6702670-1 (Version None)
Quarter: 2010Q2

REPORT INFORMATION
  Report Type: 
  Country: None (occurrence: None)
  Receive Date: 20100429
  Receipt Date: 20100421
  Transmission Date: 20101027
  Serious: Yes (Hospitalization)
  Sender: FDA-Public Use
  Company Number: FR-KINGPHARMUSA00001-K201000478

PATIENT
  Age: 61 Year
  Sex: Female

DRUGS (10)
  1. ALTACE [Suspect]
     Indication: HYPERTENSION
     Dosage: 5 MG, QD
     Route: 048
     Dates: start: 20080301, end: 20100318
  2. LUVION [Suspect]
     Indication: HYPERTENSION
     Dosage: 50 MG, QD
     Route: 048
     Dates: start: 20100118, end: 20100318
  3. LANTUS [Concomitant]
  4. ASPIRIN [Concomitant]
     Dosage: 100 MG, QD
     Route: 048
  5. SIMVASTATIN [Concomitant]
     Dosage: 40 MG, QD
     Route: 048
  6. FISIOTENS [Concomitant]
     Dosage: 0.2 MG, QD
     Route: 048
  7. FOLINA [Concomitant]
     Dosage: 5 MG, QD
     Route: 048
  8. DILATREND [Concomitant]
     Dosage: 6.25 MG, QD
     Route: 048
  9. ALLOPURINOL [Concomitant]
     Dosage: 300 MG, QD
     Route: 048
  10. HUMALOG [Concomitant]
     Route: 058

REACTIONS (2)
  - HYPERKALAEMIA [None]
  - METABOLIC ACIDOSIS [None]
